FAERS Safety Report 9370808 (Version 5)
Quarter: 2013Q4

REPORT INFORMATION
  Report Type: Spontaneous
  Country: US (occurrence: US)
  Receive Date: 20130626
  Receipt Date: 20131206
  Transmission Date: 20140711
  Serious: No
  Sender: FDA-Public Use
  Company Number: US-009507513-1306USA009653

PATIENT
  Age: 52 Year
  Sex: Female

DRUGS (3)
  1. PEGINTRON [Suspect]
     Indication: HEPATITIS C
     Dosage: REDIPEN
     Dates: start: 20130603, end: 20130730
  2. REBETOL [Suspect]
     Indication: HEPATITIS C
     Dosage: UNK
     Route: 048
     Dates: start: 20130603, end: 20130730
  3. VICTRELIS [Suspect]
     Indication: HEPATITIS C
     Dosage: UNK
     Route: 048
     Dates: start: 20130701, end: 20130730

REACTIONS (14)
  - Nausea [Unknown]
  - Gastroenteritis viral [Unknown]
  - Aphagia [Unknown]
  - Feeling hot [Unknown]
  - Hot flush [Unknown]
  - Headache [Unknown]
  - Pain [Unknown]
  - Headache [Unknown]
  - Vomiting [Unknown]
  - Hyperhidrosis [Unknown]
  - Diarrhoea [Unknown]
  - Memory impairment [Unknown]
  - Decreased appetite [Unknown]
  - Drug dose omission [Unknown]
